FAERS Safety Report 12436368 (Version 8)
Quarter: 2016Q4

REPORT INFORMATION
  Report Type: Spontaneous
  Country: CA (occurrence: CA)
  Receive Date: 20160605
  Receipt Date: 20161111
  Transmission Date: 20170207
  Serious: Yes (Other)
  Sender: FDA-Public Use
  Company Number: CA-ROCHE-1768353

PATIENT
  Age: 51 Year
  Sex: Female

DRUGS (6)
  1. XOLAIR [Suspect]
     Active Substance: OMALIZUMAB
     Dosage: UNK
     Route: 058
     Dates: start: 20160716
  2. INFLUENZA VIRUS VACCINE [Suspect]
     Active Substance: INFLUENZA VIRUS VACCINE
     Indication: PRODUCT USED FOR UNKNOWN INDICATION
     Route: 065
  3. XOLAIR [Suspect]
     Active Substance: OMALIZUMAB
     Indication: ASTHMA
     Dosage: 375 MG, BIW
     Route: 058
     Dates: start: 20140829
  4. XOLAIR [Suspect]
     Active Substance: OMALIZUMAB
     Dosage: UNK
     Route: 058
     Dates: start: 20161021
  5. XOLAIR [Suspect]
     Active Substance: OMALIZUMAB
     Dosage: UNK
     Route: 058
     Dates: start: 20160923
  6. XOLAIR [Suspect]
     Active Substance: OMALIZUMAB
     Dosage: UNK
     Route: 058
     Dates: start: 20161006

REACTIONS (21)
  - Oedema peripheral [Unknown]
  - Facial pain [Not Recovered/Not Resolved]
  - Seasonal allergy [Unknown]
  - Lung hyperinflation [Unknown]
  - Pain in extremity [Not Recovered/Not Resolved]
  - Blood pressure increased [Unknown]
  - Gait disturbance [Unknown]
  - Lung infection [Not Recovered/Not Resolved]
  - Breast mass [Unknown]
  - Total lung capacity decreased [Not Recovered/Not Resolved]
  - Exercise tolerance decreased [Unknown]
  - Pain [Unknown]
  - Peripheral swelling [Unknown]
  - Rhinitis [Not Recovered/Not Resolved]
  - Musculoskeletal pain [Not Recovered/Not Resolved]
  - Sinusitis [Unknown]
  - Hypersensitivity [Not Recovered/Not Resolved]
  - Body temperature decreased [Unknown]
  - Lung disorder [Recovering/Resolving]
  - Back pain [Not Recovered/Not Resolved]
  - Rhinorrhoea [Unknown]

NARRATIVE: CASE EVENT DATE: 20160716
